FAERS Safety Report 8677279 (Version 4)
Quarter: 2013Q1

REPORT INFORMATION
  Report Type: Spontaneous
  Country: IT (occurrence: IT)
  Receive Date: 20120723
  Receipt Date: 20130325
  Transmission Date: 20140127
  Serious: Yes (Hospitalization, Other)
  Sender: FDA-Public Use
  Company Number: IT-JNJFOC-20120707050

PATIENT
  Age: 33 Year
  Sex: Male
  Weight: 80 kg

DRUGS (7)
  1. HALDOL [Suspect]
     Indication: PRODUCT USED FOR UNKNOWN INDICATION
     Route: 048
     Dates: start: 20120713, end: 20120713
  2. LANTANON [Suspect]
     Indication: SELF INJURIOUS BEHAVIOUR
     Route: 048
     Dates: start: 20120713, end: 20120713
  3. TRITTICO [Suspect]
     Indication: SELF INJURIOUS BEHAVIOUR
     Route: 048
     Dates: start: 20120713, end: 20120713
  4. RIVOTRIL [Suspect]
     Indication: SELF INJURIOUS BEHAVIOUR
     Route: 048
     Dates: start: 20120713, end: 20120713
  5. OLANZAPINE [Suspect]
     Indication: SELF INJURIOUS BEHAVIOUR
     Route: 048
     Dates: start: 20120713, end: 20120713
  6. ANAFRANIL [Suspect]
     Indication: SELF INJURIOUS BEHAVIOUR
     Route: 048
     Dates: start: 20120713, end: 20120713
  7. DEPAKIN [Suspect]
     Indication: SELF INJURIOUS BEHAVIOUR
     Route: 048
     Dates: start: 20120713, end: 20120713

REACTIONS (7)
  - Tachycardia [Recovering/Resolving]
  - Self injurious behaviour [Unknown]
  - Speech disorder [Recovering/Resolving]
  - Snoring [Recovering/Resolving]
  - Hypotension [Unknown]
  - Overdose [Recovering/Resolving]
  - Sopor [Recovering/Resolving]
